FAERS Safety Report 7065129-0 (Version None)
Quarter: 2010Q4

REPORT INFORMATION
  Report Type: 
  Country: None (occurrence: None)
  Receive Date: 20101027
  Receipt Date: 20101014
  Transmission Date: 20110411
  Serious: Yes (Other)
  Sender: FDA-Public Use
  Company Number: FR-ACTELION-A-CH2010-40640

PATIENT
  Age: 62 Year
  Sex: Male

DRUGS (7)
  1. TRACLEER [Suspect]
     Indication: PULMONARY ARTERIAL HYPERTENSION
     Dosage: UNK , UNK
     Route: 048
     Dates: end: 20100201
  2. EXJADE [Suspect]
     Dosage: UNK
     Dates: end: 20100201
  3. HYDREA [Concomitant]
  4. FOLIC ACID [Concomitant]
  5. ANTITHROMBOTIC AGENTS [Concomitant]
  6. SILDENAFIL CITRATE [Concomitant]
  7. OXYGEN [Concomitant]

REACTIONS (9)
  - ALANINE AMINOTRANSFERASE INCREASED [None]
  - ASPARTATE AMINOTRANSFERASE INCREASED [None]
  - BLOOD BILIRUBIN INCREASED [None]
  - CYTOLYTIC HEPATITIS [None]
  - DYSPNOEA [None]
  - FATIGUE [None]
  - HEPATIC FIBROSIS [None]
  - HEPATOMEGALY [None]
  - JAUNDICE [None]
